FAERS Safety Report 7525927-3 (Version None)
Quarter: 2011Q2

REPORT INFORMATION
  Report Type: 
  Country: None (occurrence: None)
  Receive Date: 20110606
  Receipt Date: 20110603
  Transmission Date: 20111010
  Serious: Yes (Other)
  Sender: FDA-Public Use
  Company Number: D0071625A

PATIENT
  Age: 80 Year
  Sex: Male

DRUGS (1)
  1. BUPROPION HYDROCHLORIDE [Suspect]
     Route: 065
     Dates: start: 20110101

REACTIONS (2)
  - PARKINSON'S DISEASE [None]
  - ABASIA [None]
